FAERS Safety Report 8245887-X (Version None)
Quarter: 2012Q1

REPORT INFORMATION
  Report Type: 
  Country: None (occurrence: None)
  Receive Date: 20120328
  Receipt Date: 20120328
  Transmission Date: 20120608
  Serious: Yes (Hospitalization)
  Sender: FDA-Public Use
  Company Number: None

PATIENT
  Age: 63 Year
  Sex: Male
  Weight: 100 kg

DRUGS (8)
  1. GEMCITABINE [Suspect]
     Indication: PANCREATIC CARCINOMA
     Dosage: 1500MG/M2 IV X 2
     Route: 042
     Dates: start: 20120104
  2. GEMCITABINE [Suspect]
     Indication: PANCREATIC CARCINOMA
     Dosage: 1500MG/M2 IV X 2
     Route: 042
     Dates: start: 20120118
  3. FENTANYL-100 [Concomitant]
  4. DILAUDID [Concomitant]
  5. HYDROXYCHLOROQUINE SULFATE [Suspect]
     Dosage: 600MG PO BID
     Route: 048
     Dates: start: 20120102, end: 20120201
  6. KYTRIL [Concomitant]
  7. DECADRON [Concomitant]
  8. ZOFRAN ODT [Concomitant]

REACTIONS (3)
  - GASTRIC PERFORATION [None]
  - SEPSIS [None]
  - POST PROCEDURAL COMPLICATION [None]
